FAERS Safety Report 9069234 (Version 1)
Quarter: 2013Q1

REPORT INFORMATION
  Report Type: Spontaneous
  Country: ZA (occurrence: ZA)
  Receive Date: 20130215
  Receipt Date: 20130215
  Transmission Date: 20140127
  Serious: Yes (Other)
  Sender: FDA-Public Use
  Company Number: ZA-JNJFOC-20130203403

PATIENT
  Sex: Male
  Weight: 95 kg

DRUGS (2)
  1. REVELLEX [Suspect]
     Indication: RHEUMATOID ARTHRITIS
     Dosage: ONCE EVERY 10 TO 12 WEEKS
     Route: 042
     Dates: start: 20121228
  2. REVELLEX [Suspect]
     Indication: RHEUMATOID ARTHRITIS
     Dosage: ONCE EVERY 10 TO 12 WEEKS
     Route: 042

REACTIONS (1)
  - Retinal detachment [Not Recovered/Not Resolved]
